FAERS Safety Report 5251958-2 (Version None)
Quarter: 2007Q1

REPORT INFORMATION
  Report Type: 
  Country: None (occurrence: None)
  Receive Date: 20070223
  Receipt Date: 20070208
  Transmission Date: 20070707
  Serious: Yes (Death)
  Sender: FDA-Public Use
  Company Number: 163-21880-06050789

PATIENT
  Age: 77 Year
  Sex: Male

DRUGS (1)
  1. REVLIMID [Suspect]
     Indication: MYELODYSPLASTIC SYNDROME
     Dosage: 5 MG - 10 MG, DAILY, ORAL
     Route: 048
     Dates: start: 20060201, end: 20060501

REACTIONS (3)
  - ACUTE LEUKAEMIA [None]
  - RENAL FAILURE [None]
  - SEPSIS [None]
